FAERS Safety Report 4860638-4 (Version None)
Quarter: 2005Q4

REPORT INFORMATION
  Report Type: 
  Country: None (occurrence: None)
  Receive Date: 20051216
  Receipt Date: 20051208
  Transmission Date: 20060501
  Serious: Yes (Other)
  Sender: FDA-Public Use
  Company Number: 200514921BCC

PATIENT
  Age: 51 Year
  Sex: Female
  Weight: 56.6996 kg

DRUGS (4)
  1. ALEVE (CAPLET) [Suspect]
     Indication: ARTHRITIS
     Dosage: 440 MG, OM, ORAL
     Route: 048
     Dates: start: 20050901
  2. OXAZEPAM [Concomitant]
  3. DORSET [Concomitant]
  4. ZOLOFT [Concomitant]

REACTIONS (1)
  - VAGINAL HAEMORRHAGE [None]
